FAERS Safety Report 5032558-6 (Version None)
Quarter: 2006Q2

REPORT INFORMATION
  Report Type: 
  Country: None (occurrence: None)
  Receive Date: 20060620
  Receipt Date: 20060602
  Transmission Date: 20061013
  Serious: Yes (Other)
  Sender: FDA-Public Use
  Company Number: 2006RR-02500

PATIENT
  Age: 53 Year
  Sex: Female

DRUGS (2)
  1. DOXYCYCLINE [Suspect]
     Indication: ANTHRAX
     Dosage: 100 MG, BID, ORAL
     Route: 048
  2. DOXYCYCLINE [Suspect]
     Indication: PROPHYLAXIS
     Dosage: 100 MG, BID, ORAL
     Route: 048

REACTIONS (4)
  - ABDOMINAL PAIN [None]
  - CHEST PAIN [None]
  - DIARRHOEA [None]
  - IMPAIRED WORK ABILITY [None]
